FAERS Safety Report 7149368-6 (Version None)
Quarter: 2010Q4

REPORT INFORMATION
  Report Type: 
  Country: None (occurrence: None)
  Receive Date: 20101209
  Receipt Date: 20101021
  Transmission Date: 20110411
  Serious: No
  Sender: FDA-Public Use
  Company Number: US-KINGPHARMUSA00001-K201001313

PATIENT
  Sex: Female

DRUGS (2)
  1. EMBEDA [Suspect]
     Indication: SPINAL CORD DISORDER
     Dosage: 30 MG, BID
     Route: 048
     Dates: start: 20101016
  2. EMBEDA [Suspect]
     Indication: PAIN

REACTIONS (8)
  - CONSTIPATION [None]
  - DRUG INEFFECTIVE [None]
  - INFLUENZA LIKE ILLNESS [None]
  - MALAISE [None]
  - MUSCLE SPASMS [None]
  - NAUSEA [None]
  - VERTIGO [None]
  - VOMITING [None]
